FAERS Safety Report 8188424-0 (Version None)
Quarter: 2012Q1

REPORT INFORMATION
  Report Type: 
  Country: None (occurrence: None)
  Receive Date: 20120306
  Receipt Date: 20120224
  Transmission Date: 20120608
  Serious: Yes (Death)
  Sender: FDA-Public Use
  Company Number: PHHY2012JP016530

PATIENT
  Sex: Male

DRUGS (7)
  1. AMARYL [Concomitant]
     Indication: TYPE 2 DIABETES MELLITUS
     Dosage: 1 MG,
     Route: 048
     Dates: start: 20100716
  2. MARZULENE S [Concomitant]
     Indication: GASTRITIS
     Dosage: 1.5 MG,
     Route: 048
     Dates: start: 20100716
  3. ALLOPURINOL [Concomitant]
     Indication: GOUT
     Dosage: 100 MG,
     Route: 048
     Dates: start: 20100716
  4. CARVEDILOL [Concomitant]
     Indication: HYPERTENSION
     Dosage: 7.5 MG, UNK
     Route: 048
     Dates: start: 20100716
  5. TASIGNA [Suspect]
     Dosage: 200 MG, QW3
     Dates: start: 20101003
  6. CANDESARTAN CILEXETIL [Concomitant]
     Indication: HYPERTENSION
     Dosage: 8 MG,
     Route: 048
     Dates: start: 20100716
  7. TASIGNA [Suspect]
     Indication: CHRONIC MYELOID LEUKAEMIA
     Dosage: 200 MG,
     Route: 048
     Dates: start: 20100716, end: 20101002

REACTIONS (2)
  - NEOPLASM PROGRESSION [None]
  - PNEUMONIA [None]
